FAERS Safety Report 25318518 (Version 1)
Quarter: 2025Q2

REPORT INFORMATION
  Report Type: Spontaneous
  Country: US (occurrence: None)
  Receive Date: 20250514
  Receipt Date: 20250514
  Transmission Date: 20250717
  Serious: Yes (Death)
  Sender: FDA-CTU
  Company Number: None

PATIENT
  Age: 84 Year
  Sex: Male
  Weight: 68.3 kg

DRUGS (2)
  1. CEFTRIAXONE [Suspect]
     Active Substance: CEFTRIAXONE
     Indication: Sepsis
     Route: 042
     Dates: start: 20250402, end: 20250402
  2. SODIUM CHLORIDE [Concomitant]
     Active Substance: SODIUM CHLORIDE

REACTIONS (6)
  - Oxygen saturation decreased [None]
  - Anaphylactic reaction [None]
  - General physical health deterioration [None]
  - Cardiac arrest [None]
  - Acute pulmonary oedema [None]
  - Pericardial effusion [None]

NARRATIVE: CASE EVENT DATE: 20250402
